FAERS Safety Report 10651893 (Version 1)
Quarter: 2014Q4

REPORT INFORMATION
  Report Type: Report from Study
  Country: US (occurrence: US)
  Receive Date: 20141215
  Receipt Date: 20141215
  Transmission Date: 20150529
  Serious: Yes (Hospitalization, Other)
  Sender: FDA-Public Use
  Company Number: PHEH2014US024389

PATIENT
  Sex: Male

DRUGS (2)
  1. PREDNISONE. [Suspect]
     Active Substance: PREDNISONE
     Indication: GRANULOMATOSIS WITH POLYANGIITIS
     Route: 065
  2. MYFORTIC [Suspect]
     Active Substance: MYCOPHENOLATE SODIUM
     Indication: GRANULOMATOSIS WITH POLYANGIITIS
     Dosage: 720 MG, BID
     Route: 048

REACTIONS (4)
  - Adrenal insufficiency [Unknown]
  - Parkinson^s disease [Unknown]
  - Asthenia [Unknown]
  - Cardiac disorder [Unknown]
